FAERS Safety Report 9357958 (Version 1)
Quarter: 2013Q2

REPORT INFORMATION
  Report Type: Report from Study
  Country: GB (occurrence: GB)
  Receive Date: 20130620
  Receipt Date: 20130620
  Transmission Date: 20140414
  Serious: Yes (Other)
  Sender: FDA-Public Use
  Company Number: GB-US-EMD SERONO, INC.-7217942

PATIENT
  Sex: Female

DRUGS (3)
  1. REBIF [Suspect]
     Indication: RELAPSING-REMITTING MULTIPLE SCLEROSIS
     Route: 058
     Dates: start: 2003, end: 2008
  2. REBIF [Suspect]
     Route: 058
     Dates: start: 201301
  3. REBIF [Suspect]
     Route: 058

REACTIONS (2)
  - Gallbladder operation [Recovering/Resolving]
  - Chills [Unknown]
